FAERS Safety Report 7090595-4 (Version None)
Quarter: 2010Q4

REPORT INFORMATION
  Report Type: 
  Country: None (occurrence: None)
  Receive Date: 20101109
  Receipt Date: 20080904
  Transmission Date: 20110411
  Serious: No
  Sender: FDA-Public Use
  Company Number: US-KINGPHARMUSA00001-K200801000

PATIENT
  Age: 38 Year
  Sex: Male
  Weight: 83.9 kg

DRUGS (3)
  1. EPIPEN [Suspect]
     Dosage: .3 MG, SINGLE
     Dates: start: 20080817, end: 20080817
  2. VICODIN [Concomitant]
     Indication: PAIN
  3. SINGULAIR [Concomitant]
     Indication: ASTHMA

REACTIONS (1)
  - DRUG SCREEN POSITIVE [None]
